FAERS Safety Report 9508018 (Version 1)
Quarter: 2013Q1

REPORT INFORMATION
  Report Type: Spontaneous
  Country: US (occurrence: None)
  Receive Date: 20130305
  Receipt Date: 20130305
  Transmission Date: 20140127
  Serious: Yes (Other)
  Sender: FDA-Public Use
  Company Number: 163-21880-12032785

PATIENT
  Age: 68 Year
  Sex: Male

DRUGS (6)
  1. REVLIMID (LENALIDOMIDE) (CAPSULES) [Suspect]
     Indication: PLASMA CELL MYELOMA
     Dosage: 3 OUT OF 4 WEEKS
     Route: 048
     Dates: start: 20120203, end: 20120320
  2. MULTAQ (DRONEDARONE HYDROCHLORIDE) [Concomitant]
  3. WARFARIN (WARFARIN) [Concomitant]
  4. SIMVASTATIN (SIMVASTATIN) [Concomitant]
  5. DEXAMETHASONE [Concomitant]
  6. ASPIRIN [Concomitant]

REACTIONS (1)
  - Atrial fibrillation [None]
